FAERS Safety Report 19834474 (Version 2)
Quarter: 2022Q3

REPORT INFORMATION
  Report Type: Spontaneous
  Country: GB (occurrence: GB)
  Receive Date: 20210915
  Receipt Date: 20220712
  Transmission Date: 20221026
  Serious: Yes (Hospitalization, Other)
  Sender: FDA-Public Use
  Company Number: GB-LUPIN PHARMACEUTICALS INC.-2021-17226

PATIENT
  Age: 33 Year
  Sex: Male

DRUGS (19)
  1. OXYCODONE [Suspect]
     Active Substance: OXYCODONE
     Indication: Analgesic therapy
     Dosage: 120 MILLIGRAM, BID (MODIFIED RELEASE)
     Route: 048
  2. OXYCODONE [Suspect]
     Active Substance: OXYCODONE
     Dosage: 40 MG, PRN IMMEDIATE RELEASE (BETWEEN 4 AND 6 TIMES DAILY)
     Route: 048
  3. OXYCODONE [Suspect]
     Active Substance: OXYCODONE
     Dosage: 120 MILLIGRAM (VIA CONTINUOUS SC INFUSION)
     Route: 058
  4. OXYCODONE [Suspect]
     Active Substance: OXYCODONE
     Dosage: 140 MILLIGRAM, PRN
     Route: 058
  5. OXYCODONE [Suspect]
     Active Substance: OXYCODONE
     Dosage: UNK (DOSE REDUCED)
     Route: 058
  6. OXYCODONE [Suspect]
     Active Substance: OXYCODONE
     Dosage: 80 MILLIGRAM
     Route: 065
  7. OXYCODONE [Suspect]
     Active Substance: OXYCODONE
     Dosage: UNK UNK, PRN
     Route: 065
  8. OXYCODONE [Suspect]
     Active Substance: OXYCODONE
     Dosage: 35 MG, QD (IMMEDIATE RELEASE)
     Route: 048
  9. METOCLOPRAMIDE [Suspect]
     Active Substance: METOCLOPRAMIDE
     Indication: Product used for unknown indication
     Dosage: 10 MILLIGRAM, TID
     Route: 048
  10. COCODAMOL [Suspect]
     Active Substance: ACETAMINOPHEN\CODEINE PHOSPHATE
     Indication: Analgesic therapy
     Dosage: UNK (30/500 MG FOUR TIMES A DAY)
     Route: 065
  11. CYCLIZINE [Concomitant]
     Active Substance: CYCLIZINE
     Indication: Hyperaesthesia
     Dosage: 150 MILLIGRAM (VIA CONTINUOUS SC INFUSION)
     Route: 058
  12. CYCLIZINE [Concomitant]
     Active Substance: CYCLIZINE
     Dosage: 50 MG, PRN
     Route: 048
  13. DEXAMETHASONE [Concomitant]
     Active Substance: DEXAMETHASONE
     Indication: Analgesic therapy
     Dosage: 2 MILLIGRAM, QD
     Route: 042
  14. DEXAMETHASONE [Concomitant]
     Active Substance: DEXAMETHASONE
     Indication: Hyperaesthesia
     Dosage: 8 MILLIGRAM
     Route: 042
  15. DEXAMETHASONE [Concomitant]
     Active Substance: DEXAMETHASONE
     Indication: Intestinal obstruction
  16. DEXAMETHASONE [Concomitant]
     Active Substance: DEXAMETHASONE
     Indication: Pain
  17. KETAMINE [Concomitant]
     Active Substance: KETAMINE
     Indication: Hyperaesthesia
     Dosage: 500 MILLIGRAM (BURST REGIMEN WHICH WAS TITRATED OVER 3 DAYS TO 500 MG/24 HOURS VIA CONTINUOUS SC INF
     Route: 058
  18. ACETAMINOPHEN [Concomitant]
     Active Substance: ACETAMINOPHEN
     Indication: Inflammation
     Dosage: 1 GRAM, QID
     Route: 042
  19. CLONAZEPAM [Concomitant]
     Active Substance: CLONAZEPAM
     Indication: Product used for unknown indication
     Dosage: 1 MILLIGRAM, QD (NOCTE)
     Route: 065

REACTIONS (4)
  - Hyperaesthesia [Recovered/Resolved]
  - Intestinal obstruction [Recovering/Resolving]
  - General physical health deterioration [Recovering/Resolving]
  - Mental impairment [Recovering/Resolving]
